FAERS Safety Report 12211092 (Version 1)
Quarter: 2016Q1

REPORT INFORMATION
  Report Type: Spontaneous
  Country: US (occurrence: None)
  Receive Date: 20160324
  Receipt Date: 20160324
  Transmission Date: 20160526
  Serious: Yes (Hospitalization)
  Sender: FDA-Public Use
  Company Number: None

PATIENT
  Age: 71 Year
  Sex: Male
  Weight: 91.1 kg

DRUGS (8)
  1. ACETAMINOPHEN. [Concomitant]
     Active Substance: ACETAMINOPHEN
  2. LORAZEPAM. [Concomitant]
     Active Substance: LORAZEPAM
  3. OXYCODONE [Concomitant]
     Active Substance: OXYCODONE
  4. RIVEROXABAN [Concomitant]
  5. REGORAFINIB 40MG BAYER [Suspect]
     Active Substance: REGORAFENIB
     Indication: COLORECTAL CANCER METASTATIC
     Route: 048
     Dates: start: 20160314
  6. HYDROCODONE BITARTRATE AND ACETAMINOPHEN [Concomitant]
     Active Substance: ACETAMINOPHEN\HYDROCODONE BITARTRATE
  7. TYLENOL [Concomitant]
     Active Substance: ACETAMINOPHEN
  8. OMEPERAZOLE [Concomitant]

REACTIONS (2)
  - Flatulence [None]
  - Abdominal pain [None]

NARRATIVE: CASE EVENT DATE: 20160319
